FAERS Safety Report 24604239 (Version 3)
Quarter: 2025Q1

REPORT INFORMATION
  Report Type: Report from Study
  Country: US (occurrence: US)
  Receive Date: 20241111
  Receipt Date: 20250130
  Transmission Date: 20250409
  Serious: Yes (Other)
  Sender: TAKEDA
  Company Number: US-TAKEDA-2023TUS058543

PATIENT
  Sex: Female
  Weight: 109 kg

DRUGS (17)
  1. HUMAN IMMUNOGLOBULIN G [Suspect]
     Active Substance: HUMAN IMMUNOGLOBULIN G
     Indication: Immunodeficiency
     Dosage: 25 GRAM, Q2WEEKS
     Dates: start: 20230407
  2. DIPHENHYDRAMINE HYDROCHLORIDE [Concomitant]
     Active Substance: DIPHENHYDRAMINE HYDROCHLORIDE
  3. VITAMIN D3 [Concomitant]
     Active Substance: CHOLECALCIFEROL
  4. EPINEPHRINE [Concomitant]
     Active Substance: EPINEPHRINE
  5. AZITHROMYCIN [Concomitant]
     Active Substance: AZITHROMYCIN
  6. IRON [Concomitant]
     Active Substance: IRON
  7. SERTRALINE HYDROCHLORIDE [Concomitant]
     Active Substance: SERTRALINE HYDROCHLORIDE
  8. NEXIUM [Concomitant]
     Active Substance: ESOMEPRAZOLE MAGNESIUM
  9. ACETAMINOPHEN [Concomitant]
     Active Substance: ACETAMINOPHEN
  10. FOLIC ACID [Concomitant]
     Active Substance: FOLIC ACID
  11. ASPIRIN [Concomitant]
     Active Substance: ASPIRIN
  12. TOPROL XL [Concomitant]
     Active Substance: METOPROLOL SUCCINATE
  13. LISINOPRIL [Concomitant]
     Active Substance: LISINOPRIL
  14. ELIQUIS [Concomitant]
     Active Substance: APIXABAN
  15. Lmx [Concomitant]
  16. MOUNJARO [Concomitant]
     Active Substance: TIRZEPATIDE
  17. PEPCID AC [Concomitant]
     Active Substance: FAMOTIDINE

REACTIONS (13)
  - Nephrolithiasis [Unknown]
  - Abdominal mass [Unknown]
  - Herpes zoster [Not Recovered/Not Resolved]
  - Gastroenteritis viral [Unknown]
  - Sinusitis [Unknown]
  - COVID-19 [Unknown]
  - Illness [Unknown]
  - Ulcer [Unknown]
  - Infection [Unknown]
  - Upper respiratory tract infection [Unknown]
  - Infusion site haemorrhage [Unknown]
  - Contusion [Unknown]
  - Pain [Unknown]
